FAERS Safety Report 5812064-9 (Version None)
Quarter: 2008Q3

REPORT INFORMATION
  Report Type: 
  Country: None (occurrence: None)
  Receive Date: 20080716
  Receipt Date: 20080711
  Transmission Date: 20090109
  Serious: Yes (Hospitalization)
  Sender: FDA-Public Use
  Company Number: AU-BOEHRINGER INGELHEIM GMBH, GERMANY-2008-BP-10954AU

PATIENT
  Sex: Male

DRUGS (2)
  1. SPIRIVA [Suspect]
     Route: 055
     Dates: start: 20070613, end: 20070702
  2. SYMBICORT [Suspect]
     Indication: RESPIRATORY DISORDER
     Route: 055
     Dates: start: 20070616, end: 20070727

REACTIONS (1)
  - PLEURITIC PAIN [None]
